FAERS Safety Report 5586558-8 (Version None)
Quarter: 2008Q1

REPORT INFORMATION
  Report Type: 
  Country: None (occurrence: None)
  Receive Date: 20080110
  Receipt Date: 20071023
  Transmission Date: 20080703
  Serious: Yes (Other)
  Sender: FDA-Public Use
  Company Number: DE-BAYER-DE-2007-005290

PATIENT
  Age: 30 Year
  Sex: Female

DRUGS (2)
  1. DRSP+EE (SH T 186 DF ) (24+4) [Suspect]
     Indication: ORAL CONTRACEPTION
     Route: 048
     Dates: start: 20060415, end: 20060909
  2. ASCOTOP [Concomitant]
     Indication: MIGRAINE
     Route: 048
     Dates: start: 20060801, end: 20060812

REACTIONS (3)
  - PREGNANCY ON ORAL CONTRACEPTIVE [None]
  - PREMATURE BABY [None]
  - PREMATURE LABOUR [None]
